FAERS Safety Report 6706653-7 (Version None)
Quarter: 2010Q2

REPORT INFORMATION
  Report Type: 
  Country: None (occurrence: None)
  Receive Date: 20100503
  Receipt Date: 20100423
  Transmission Date: 20101027
  Serious: Yes (Other)
  Sender: FDA-Public Use
  Company Number: BR-ASTRAZENECA-2010SE18552

PATIENT
  Age: 74 Year
  Sex: Female
  Weight: 62 kg

DRUGS (4)
  1. CRESTOR [Suspect]
     Indication: BLOOD CHOLESTEROL INCREASED
     Route: 048
  2. SELOZOK [Concomitant]
     Route: 048
     Dates: end: 20100301
  3. ARADOIS [Concomitant]
     Dosage: OD
     Route: 048
     Dates: start: 20060101
  4. ANCORON [Concomitant]
     Indication: ARRHYTHMIA
     Route: 048
     Dates: start: 20060101

REACTIONS (3)
  - FALL [None]
  - FEMUR FRACTURE [None]
  - OEDEMA PERIPHERAL [None]
